FAERS Safety Report 23572208 (Version 2)
Quarter: 2024Q3

REPORT INFORMATION
  Report Type: Spontaneous
  Country: US (occurrence: US)
  Receive Date: 20240227
  Receipt Date: 20240909
  Transmission Date: 20241017
  Serious: No
  Sender: SANOFI AVENTIS
  Company Number: US-SA-SAC20240223000348

PATIENT
  Age: 2 Year
  Sex: Female

DRUGS (1)
  1. DUPIXENT [Suspect]
     Active Substance: DUPILUMAB
     Indication: Eczema
     Dosage: 200 MG, Q4W (EVERY 28 DAYS)
     Route: 058
     Dates: start: 20230916

REACTIONS (4)
  - Diarrhoea [Unknown]
  - Rhinorrhoea [Unknown]
  - Rash macular [Unknown]
  - Pruritus [Unknown]

NARRATIVE: CASE EVENT DATE: 20230101
